FAERS Safety Report 9810918 (Version 4)
Quarter: 2015Q2

REPORT INFORMATION
  Report Type: Spontaneous
  Country: US (occurrence: US)
  Receive Date: 20140110
  Receipt Date: 20150526
  Transmission Date: 20150821
  Serious: Yes (Other)
  Sender: FDA-Public Use
  Company Number: US-SANOFI-AVENTIS-2013SA003900

PATIENT
  Age: 61 Year
  Sex: Female

DRUGS (5)
  1. PLAVIX [Suspect]
     Active Substance: CLOPIDOGREL BISULFATE
     Indication: MYOCARDIAL INFARCTION
     Route: 048
     Dates: start: 20031001
  2. ASPIRIN. [Concomitant]
     Active Substance: ASPIRIN
     Dates: start: 20031001
  3. PLAVIX [Suspect]
     Active Substance: CLOPIDOGREL BISULFATE
     Indication: STENT PLACEMENT
     Route: 048
     Dates: start: 20031001
  4. ASPIRIN. [Concomitant]
     Active Substance: ASPIRIN
     Dates: start: 20031101, end: 20080401
  5. ASPIRIN. [Concomitant]
     Active Substance: ASPIRIN
     Dates: start: 20080501

REACTIONS (3)
  - Cerebral haemorrhage [Unknown]
  - Ulcer haemorrhage [Unknown]
  - Multiple injuries [Unknown]

NARRATIVE: CASE EVENT DATE: 201101
